FAERS Safety Report 7982937-X (Version None)
Quarter: 2011Q4

REPORT INFORMATION
  Report Type: 
  Country: None (occurrence: None)
  Receive Date: 20111215
  Receipt Date: 20111209
  Transmission Date: 20120403
  Serious: Yes (Hospitalization)
  Sender: FDA-Public Use
  Company Number: NL-MEDIMMUNE-MEDI-0014125

PATIENT
  Sex: Male
  Weight: 7.4 kg

DRUGS (3)
  1. SYNAGIS [Suspect]
     Route: 030
     Dates: start: 20111014, end: 20111109
  2. SYNAGIS [Suspect]
     Indication: TRACHEOMALACIA
  3. SYNAGIS [Suspect]
     Indication: BRONCHOMALACIA
     Route: 030
     Dates: start: 20111207, end: 20111207

REACTIONS (2)
  - PYREXIA [None]
  - RESPIRATORY TRACT INFECTION [None]
